FAERS Safety Report 6383995-9 (Version None)
Quarter: 2009Q3

REPORT INFORMATION
  Report Type: 
  Country: None (occurrence: None)
  Receive Date: 20090928
  Receipt Date: 20090917
  Transmission Date: 20100115
  Serious: Yes (Other)
  Sender: FDA-Public Use
  Company Number: 2009-01384

PATIENT
  Age: 67 Year
  Sex: Female

DRUGS (2)
  1. VELCADE [Suspect]
     Indication: PLASMACYTOMA
     Dates: start: 20090331
  2. DEXAMETHASONE TAB [Suspect]
     Indication: PLASMACYTOMA

REACTIONS (1)
  - SPONTANEOUS HAEMATOMA [None]
